FAERS Safety Report 25052254 (Version 1)
Quarter: 2025Q1

REPORT INFORMATION
  Report Type: Spontaneous
  Country: GB (occurrence: GB)
  Receive Date: 20250307
  Receipt Date: 20250307
  Transmission Date: 20250409
  Serious: Yes (Hospitalization, Other)
  Sender: ELI LILLY AND COMPANY
  Company Number: None

PATIENT
  Sex: Male
  Weight: 118 kg

DRUGS (3)
  1. MOUNJARO [Suspect]
     Active Substance: TIRZEPATIDE
     Indication: Weight control
     Dosage: 2.5 MG, WEEKLY (1/W)
     Route: 065
     Dates: start: 202411
  2. RAMIPRIL [Concomitant]
     Active Substance: RAMIPRIL
     Indication: Hypertension
     Route: 065
     Dates: start: 20240101
  3. GAVISCON [ALGELDRATE;ALGINIC ACID;MAGNESIUM T [Concomitant]
     Indication: Gastrooesophageal reflux disease
     Route: 065

REACTIONS (8)
  - Laryngeal oedema [Recovering/Resolving]
  - Pruritus [Unknown]
  - Food intolerance [Unknown]
  - Haemoptysis [Unknown]
  - Stomach mass [Unknown]
  - Haematemesis [Unknown]
  - Lip swelling [Unknown]
  - Vomiting [Unknown]

NARRATIVE: CASE EVENT DATE: 20241206
